FAERS Safety Report 15994888 (Version 5)
Quarter: 2019Q3

REPORT INFORMATION
  Report Type: Report from Study
  Country: US (occurrence: US)
  Receive Date: 20190222
  Receipt Date: 20190708
  Transmission Date: 20191004
  Serious: Yes (Other)
  Sender: FDA-Public Use
  Company Number: US-CELGENEUS-USA-20190205223

PATIENT
  Age: 79 Year
  Sex: Male
  Weight: 85.5 kg

DRUGS (3)
  1. REVLIMID [Suspect]
     Active Substance: LENALIDOMIDE
     Indication: IMPAIRED QUALITY OF LIFE
     Dosage: 2.5 MILLIGRAM
     Route: 048
     Dates: start: 20150911, end: 20151214
  2. VIDAZA [Suspect]
     Active Substance: AZACITIDINE
     Indication: IMPAIRED QUALITY OF LIFE
     Route: 048
     Dates: start: 20150713, end: 20150717
  3. REVLIMID [Suspect]
     Active Substance: LENALIDOMIDE
     Indication: MYELODYSPLASTIC SYNDROME
     Dosage: 2.5 MILLIGRAM
     Route: 048
     Dates: start: 20150606, end: 20150709

REACTIONS (6)
  - Pancytopenia [Recovered/Resolved]
  - Renal impairment [Recovered/Resolved]
  - Rash [Recovered/Resolved]
  - Pancytopenia [Unknown]
  - Renal impairment [Recovered/Resolved]
  - Dizziness [Recovered/Resolved]

NARRATIVE: CASE EVENT DATE: 20150606
